FAERS Safety Report 8839878 (Version 1)
Quarter: 2012Q4

REPORT INFORMATION
  Report Type: Spontaneous
  Country: ES (occurrence: None)
  Receive Date: 20121011
  Receipt Date: 20121011
  Transmission Date: 20130627
  Serious: Yes (Other)
  Sender: FDA-Public Use
  Company Number: APL-2012-00178

PATIENT
  Age: 70 Year
  Sex: Male

DRUGS (1)
  1. PECFENT [Suspect]
     Indication: BREAKTHROUGH PAIN
     Dates: start: 201205, end: 201205

REACTIONS (1)
  - Mental impairment [None]
